FAERS Safety Report 9571097 (Version 4)
Quarter: 2013Q4

REPORT INFORMATION
  Report Type: Report from Study
  Country: US (occurrence: US)
  Receive Date: 20131001
  Receipt Date: 20131111
  Transmission Date: 20140711
  Serious: No
  Sender: FDA-Public Use
  Company Number: US-VERTEX PHARMACEUTICALS INC-2013-010062

PATIENT
  Age: 71 Year
  Sex: Male
  Weight: 86.17 kg

DRUGS (4)
  1. VX-950 (TELAPREVIR) [Suspect]
     Indication: HEPATITIS C
     Dosage: 750 MG, TID
     Route: 048
     Dates: start: 20130919
  2. COPEGUS [Suspect]
     Indication: HEPATITIS C
     Dosage: 400 MG, BID
     Dates: start: 20130919, end: 20131010
  3. COPEGUS [Suspect]
     Dosage: 600 MG, BID
     Route: 048
     Dates: start: 20131010
  4. PEGASYS [Suspect]
     Indication: HEPATITIS C
     Dosage: 1 SHOT QW
     Route: 058
     Dates: start: 20130919

REACTIONS (2)
  - Rash pruritic [Recovered/Resolved]
  - Skin exfoliation [Recovered/Resolved]
